FAERS Safety Report 5753804-7 (Version None)
Quarter: 2008Q2

REPORT INFORMATION
  Report Type: 
  Country: None (occurrence: None)
  Receive Date: 20080530
  Receipt Date: 20080521
  Transmission Date: 20081010
  Serious: Yes (Hospitalization)
  Sender: FDA-Public Use
  Company Number: JP-MERCK-0805USA04961

PATIENT
  Age: 6 Year
  Sex: Male

DRUGS (6)
  1. DECADRON SRC [Suspect]
     Indication: ASTHMA
     Route: 048
     Dates: start: 20070401, end: 20070501
  2. DECADRON SRC [Suspect]
     Route: 048
     Dates: start: 20070501, end: 20070901
  3. DECADRON SRC [Suspect]
     Route: 048
     Dates: start: 20070901
  4. PULMICORT [Suspect]
     Indication: ASTHMA
     Dates: start: 20060901
  5. SEREVENT [Concomitant]
     Indication: ASTHMA
     Dates: start: 20061101, end: 20070101
  6. KLARICID [Concomitant]
     Indication: SINUSITIS
     Route: 048
     Dates: start: 20060601, end: 20070101

REACTIONS (4)
  - ASTHMA [None]
  - BLOOD CORTISOL DECREASED [None]
  - PNEUMONIA [None]
  - WEIGHT INCREASED [None]
